FAERS Safety Report 20975951 (Version 1)
Quarter: 2022Q2

REPORT INFORMATION
  Report Type: Spontaneous
  Country: FR (occurrence: FR)
  Receive Date: 20220617
  Receipt Date: 20220617
  Transmission Date: 20220721
  Serious: Yes (Other)
  Sender: FDA-Public Use
  Company Number: None

PATIENT
  Age: 77 Year
  Sex: Male
  Weight: 96 kg

DRUGS (2)
  1. NOXAFIL [Interacting]
     Active Substance: POSACONAZOLE
     Indication: Infection
     Dosage: 300 MILLIGRAM, QD
     Route: 048
     Dates: start: 20190627, end: 20190703
  2. ELIQUIS [Interacting]
     Active Substance: APIXABAN
     Indication: Atrial fibrillation
     Dosage: 10 MILLIGRAM, QD
     Route: 048
     Dates: end: 20190703

REACTIONS (3)
  - Drug interaction [Recovered/Resolved]
  - Overdose [Recovered/Resolved]
  - Epistaxis [Recovered/Resolved]

NARRATIVE: CASE EVENT DATE: 20190627
